FAERS Safety Report 8467440-5 (Version None)
Quarter: 2012Q2

REPORT INFORMATION
  Report Type: 
  Country: None (occurrence: None)
  Receive Date: 20120626
  Receipt Date: 20120411
  Transmission Date: 20120825
  Serious: No
  Sender: FDA-Public Use
  Company Number: US-ASTRAZENECA-2012SE07565

PATIENT
  Age: 44 Year
  Sex: Female

DRUGS (1)
  1. CAPRELSA [Suspect]
     Indication: THYROID CANCER
     Route: 048

REACTIONS (6)
  - PERIPHERAL COLDNESS [None]
  - DIARRHOEA [None]
  - TACHYCARDIA [None]
  - SKIN WRINKLING [None]
  - RASH [None]
  - MUSCLE SPASMS [None]
